FAERS Safety Report 21007057 (Version 1)
Quarter: 2022Q2

REPORT INFORMATION
  Report Type: Report from Study
  Country: CA (occurrence: CA)
  Receive Date: 20220625
  Receipt Date: 20220625
  Transmission Date: 20220721
  Serious: Yes (Other)
  Sender: FDA-Public Use
  Company Number: None

PATIENT
  Age: 67 Year
  Sex: Female

DRUGS (3)
  1. LETROZOLE [Suspect]
     Active Substance: LETROZOLE
     Indication: Breast cancer metastatic
     Route: 048
  2. FULVESTRANT [Suspect]
     Active Substance: FULVESTRANT
     Indication: Breast cancer metastatic
     Route: 048
  3. RIBOCICLIB [Suspect]
     Active Substance: RIBOCICLIB
     Indication: Breast cancer metastatic
     Route: 048

REACTIONS (7)
  - Breast cancer metastatic [Unknown]
  - Malaise [Unknown]
  - Malignant neoplasm progression [Unknown]
  - Muscular weakness [Unknown]
  - Peripheral swelling [Unknown]
  - Pulmonary oedema [Unknown]
  - Condition aggravated [Unknown]
